FAERS Safety Report 16042764 (Version 1)
Quarter: 2019Q2

REPORT INFORMATION
  Report Type: Spontaneous
  Country: US (occurrence: US)
  Receive Date: 20190306
  Receipt Date: 20190306
  Transmission Date: 20190711
  Serious: No
  Sender: FDA-Public Use
  Company Number: None

PATIENT
  Age: 56 Year
  Sex: Female

DRUGS (5)
  1. NEURONTIN 800MG [Concomitant]
  2. PROMETHAZINE 12.5MG [Concomitant]
  3. ECOTRIN 81 [Concomitant]
  4. MAVYRET [Suspect]
     Active Substance: GLECAPREVIR\PIBRENTASVIR
     Indication: HEPATITIS C
     Route: 048
     Dates: start: 20190211, end: 20190222
  5. METOPROLOL 50MG [Concomitant]
     Active Substance: METOPROLOL

REACTIONS (2)
  - Tachycardia [None]
  - Therapy cessation [None]

NARRATIVE: CASE EVENT DATE: 20190304
